FAERS Safety Report 11544827 (Version 1)
Quarter: 2015Q3

REPORT INFORMATION
  Report Type: Spontaneous
  Country: US (occurrence: US)
  Receive Date: 20150924
  Receipt Date: 20150924
  Transmission Date: 20151125
  Serious: Yes (Hospitalization, Other)
  Sender: FDA-Public Use
  Company Number: US-ACTAVIS-2015-20451

PATIENT
  Age: 37 Year
  Sex: Female

DRUGS (1)
  1. LIDOCAINE HYDROCHLORIDE (WATSON LABORATORIES) [Suspect]
     Active Substance: LIDOCAINE HYDROCHLORIDE
     Indication: LIPOSUCTION
     Dosage: 1 L OF 0.1% LIDOCAINE (1 GRAM TOTAL DOSE; 13MG/KG)
     Route: 065

REACTIONS (4)
  - Agitation [Recovered/Resolved]
  - Feeling abnormal [Recovered/Resolved]
  - Incorrect dose administered [Recovered/Resolved]
  - Toxicity to various agents [Recovered/Resolved]
